FAERS Safety Report 5952110-5 (Version None)
Quarter: 2008Q4

REPORT INFORMATION
  Report Type: 
  Country: None (occurrence: None)
  Receive Date: 20081113
  Receipt Date: 20080425
  Transmission Date: 20090506
  Serious: No
  Sender: FDA-Public Use
  Company Number: A0724871A

PATIENT
  Age: 63 Year
  Sex: Female

DRUGS (1)
  1. COREG [Suspect]
     Dosage: 3.25MG UNKNOWN
     Route: 048

REACTIONS (1)
  - RASH [None]
